FAERS Safety Report 7796084-3 (Version None)
Quarter: 2011Q4

REPORT INFORMATION
  Report Type: 
  Country: None (occurrence: None)
  Receive Date: 20111004
  Receipt Date: 20110919
  Transmission Date: 20120403
  Serious: Yes (Other)
  Sender: FDA-Public Use
  Company Number: US-WATSON-2011-15217

PATIENT

DRUGS (1)
  1. FENTANYL-25 [Suspect]
     Indication: PRODUCT USED FOR UNKNOWN INDICATION
     Dosage: UNK
     Route: 062

REACTIONS (4)
  - MENTAL IMPAIRMENT [None]
  - OVERDOSE [None]
  - CONFUSIONAL STATE [None]
  - VOMITING [None]
